FAERS Safety Report 9995339 (Version 2)
Quarter: 2014Q1

REPORT INFORMATION
  Report Type: Spontaneous
  Country: US (occurrence: US)
  Receive Date: 20140311
  Receipt Date: 20140311
  Transmission Date: 20141002
  Serious: Yes (Other)
  Sender: FDA-Public Use
  Company Number: US-JNJFOC-20140118931

PATIENT
  Sex: Female

DRUGS (6)
  1. REMICADE [Suspect]
     Indication: CROHN^S DISEASE
     Route: 042
     Dates: start: 20081206
  2. PREDNISONE [Suspect]
     Indication: PREMEDICATION
     Dosage: 3 DAYS PRIOR TO INFUSION
     Route: 065
     Dates: start: 2008
  3. CELEBREX [Concomitant]
     Indication: ANTIINFLAMMATORY THERAPY
     Route: 065
     Dates: start: 2003
  4. LOESTRIN [Concomitant]
     Indication: BLOOD OESTROGEN
     Route: 065
     Dates: start: 2000
  5. NIZORAL [Concomitant]
     Indication: SEBORRHOEIC DERMATITIS
     Route: 065
     Dates: start: 2009
  6. VITAMIN D [Concomitant]
     Indication: VITAMIN D DEFICIENCY
     Dosage: 50000 UNITS
     Route: 065
     Dates: start: 2010

REACTIONS (3)
  - Foot fracture [Unknown]
  - Impaired healing [Unknown]
  - Adverse event [Unknown]
